FAERS Safety Report 7674613-8 (Version None)
Quarter: 2011Q3

REPORT INFORMATION
  Report Type: 
  Country: None (occurrence: None)
  Receive Date: 20110810
  Receipt Date: 20110729
  Transmission Date: 20111222
  Serious: Yes (Hospitalization)
  Sender: FDA-Public Use
  Company Number: FR-PFIZER INC-2005133399

PATIENT
  Age: 1 Year
  Sex: Female

DRUGS (2)
  1. SOMATROPIN [Suspect]
     Indication: PRADER-WILLI SYNDROME
     Dosage: 0.3 MG, 1X/DAY
     Dates: start: 20040818
  2. SOMATROPIN [Suspect]
     Dosage: 0.3 MG, 1X/DAY

REACTIONS (2)
  - SLEEP APNOEA SYNDROME [None]
  - TONSILLAR HYPERTROPHY [None]
